FAERS Safety Report 6059778-6 (Version None)
Quarter: 2009Q1

REPORT INFORMATION
  Report Type: 
  Country: None (occurrence: None)
  Receive Date: 20090130
  Receipt Date: 20090120
  Transmission Date: 20090719
  Serious: Yes (Life-Threatening, Hospitalization)
  Sender: FDA-Public Use
  Company Number: RU-ROCHE-594340

PATIENT
  Sex: Female

DRUGS (1)
  1. BONIVA [Suspect]
     Indication: OSTEOPOROSIS
     Dosage: DOSE FORM: TABLET.
     Route: 048
     Dates: start: 20080101

REACTIONS (3)
  - ENDOCARDITIS BACTERIAL [None]
  - MITRAL VALVE DISEASE [None]
  - MITRAL VALVE REPLACEMENT [None]
